FAERS Safety Report 20598902 (Version 3)
Quarter: 2022Q4

REPORT INFORMATION
  Report Type: Spontaneous
  Country: JP (occurrence: JP)
  Receive Date: 20220315
  Receipt Date: 20221025
  Transmission Date: 20230113
  Serious: Yes (Other)
  Sender: FDA-Public Use
  Company Number: JP-ONO-2022JP007242

PATIENT
  Age: 75 Year
  Sex: Female

DRUGS (1)
  1. OPDIVO [Suspect]
     Active Substance: NIVOLUMAB
     Indication: Malignant neoplasm of unknown primary site
     Dosage: UNK
     Route: 041

REACTIONS (3)
  - Uveitis [Recovering/Resolving]
  - Gait disturbance [Recovering/Resolving]
  - Neuropathy peripheral [Recovering/Resolving]
